FAERS Safety Report 5149323-1 (Version None)
Quarter: 2006Q4

REPORT INFORMATION
  Report Type: 
  Country: None (occurrence: None)
  Receive Date: 20061113
  Receipt Date: 20061109
  Transmission Date: 20070319
  Serious: Yes (Disabling)
  Sender: FDA-Public Use
  Company Number: AT-GLAXOSMITHKLINE-B0446219A

PATIENT
  Sex: Female

DRUGS (1)
  1. VALTREX [Suspect]
     Indication: HERPES ZOSTER
     Route: 065

REACTIONS (5)
  - FEELING ABNORMAL [None]
  - HEPATIC ENZYME INCREASED [None]
  - NAUSEA [None]
  - PARAESTHESIA [None]
  - VOMITING [None]
